FAERS Safety Report 22242300 (Version 1)
Quarter: 2023Q2

REPORT INFORMATION
  Report Type: Spontaneous
  Country: US (occurrence: US)
  Receive Date: 20230422
  Receipt Date: 20230422
  Transmission Date: 20230722
  Serious: No
  Sender: FDA-Public Use
  Company Number: US-UNITED THERAPEUTICS-UNT-2023-005715

PATIENT
  Age: 63 Year
  Sex: Female
  Weight: 45.351 kg

DRUGS (2)
  1. REMODULIN [Suspect]
     Active Substance: TREPROSTINIL
     Indication: Pulmonary arterial hypertension
     Dosage: 0.032 ?G/KG (REMUNITY SELF-FILL WITH 1.9 ML/CASSETTE AT PUMP RATE 20 MCL/HOUR), CONTINUING
     Route: 058
  2. REMODULIN [Suspect]
     Active Substance: TREPROSTINIL
     Dosage: UNK, CONTINUING
     Route: 058
     Dates: start: 20230124

REACTIONS (10)
  - Device failure [Recovered/Resolved]
  - Device failure [Recovered/Resolved]
  - Infusion site reaction [Unknown]
  - Device failure [Recovered/Resolved]
  - Device use error [Recovered/Resolved]
  - Device difficult to use [Not Recovered/Not Resolved]
  - Device use issue [Unknown]
  - Device issue [Unknown]
  - Device leakage [Unknown]
  - Wrong technique in device usage process [Unknown]

NARRATIVE: CASE EVENT DATE: 20230201
